FAERS Safety Report 25416211 (Version 1)
Quarter: 2025Q2

REPORT INFORMATION
  Report Type: Spontaneous
  Country: US (occurrence: US)
  Receive Date: 20250610
  Receipt Date: 20250610
  Transmission Date: 20250716
  Serious: Yes (Death, Other)
  Sender: AMGEN
  Company Number: US-AMGEN-USASP2025108522

PATIENT

DRUGS (1)
  1. PREDNISONE [Suspect]
     Active Substance: PREDNISONE
     Indication: Immunosuppressant drug therapy
     Route: 065

REACTIONS (6)
  - Death [Fatal]
  - Aneurysm thrombosis [Unknown]
  - Vascular graft occlusion [Unknown]
  - Postoperative wound infection [Unknown]
  - Post procedural haematoma [Unknown]
  - Peripheral artery aneurysm [Unknown]
